FAERS Safety Report 4283358-6 (Version None)
Quarter: 2004Q1

REPORT INFORMATION
  Report Type: 
  Country: None (occurrence: None)
  Receive Date: 20040202
  Receipt Date: 20040121
  Transmission Date: 20041129
  Serious: Yes (Hospitalization)
  Sender: FDA-Public Use
  Company Number: PHNU2004DE00607

PATIENT
  Age: 77 Year
  Sex: Male
  Weight: 89 kg

DRUGS (3)
  1. EXELON [Suspect]
     Indication: DEMENTIA ALZHEIMER'S TYPE
     Dosage: 1.5 MG, BID
     Route: 048
     Dates: start: 20030101, end: 20031016
  2. ISCOVER                                 /GFR/ [Suspect]
     Indication: CEREBRAL INFARCTION
     Dosage: 75 MG, QD
     Route: 048
     Dates: start: 20030701, end: 20031016
  3. CONCOR [Concomitant]
     Indication: HYPERTENSION
     Dosage: 5 MG, QD
     Route: 048
     Dates: start: 20020101

REACTIONS (8)
  - ABDOMINAL PAIN UPPER [None]
  - DRUG INTERACTION [None]
  - EROSIVE DUODENITIS [None]
  - GASTRITIS EROSIVE [None]
  - HAEMATOCRIT DECREASED [None]
  - HAEMOGLOBIN DECREASED [None]
  - MELAENA [None]
  - NAUSEA [None]
